FAERS Safety Report 21855884 (Version 1)
Quarter: 2023Q1

REPORT INFORMATION
  Report Type: Spontaneous
  Country: US (occurrence: US)
  Receive Date: 20230112
  Receipt Date: 20230112
  Transmission Date: 20230418
  Serious: Yes (Death, Other)
  Sender: FDA-Public Use
  Company Number: US-INCYTE CORPORATION-2023IN000275

PATIENT

DRUGS (1)
  1. JAKAFI [Suspect]
     Active Substance: RUXOLITINIB
     Indication: Myeloproliferative neoplasm
     Dosage: 15 MG DOSE (1X5MG TAB AND 1X10MG TAB) EVERY MON, WED, FRI
     Route: 048
     Dates: start: 20220110

REACTIONS (2)
  - Death [Fatal]
  - Off label use [Unknown]
